FAERS Safety Report 10511145 (Version 1)
Quarter: 2014Q4

REPORT INFORMATION
  Report Type: Spontaneous
  Country: DE (occurrence: None)
  Receive Date: 20141008
  Receipt Date: 20141008
  Transmission Date: 20150528
  Serious: Yes (Other)
  Sender: FDA-Public Use
  Company Number: HRA-CDB20140174

PATIENT
  Sex: Female

DRUGS (1)
  1. ELLAONE 30 MG TABLETTE (ELLAONE) (ULIPRISTAL ACETATE) [Suspect]
     Active Substance: ULIPRISTAL ACETATE
     Indication: POST COITAL CONTRACEPTION
     Dates: start: 201408

REACTIONS (6)
  - Abdominal discomfort [None]
  - Headache [None]
  - Menstruation delayed [None]
  - Abdominal pain [None]
  - Circulatory collapse [None]
  - Loss of consciousness [None]

NARRATIVE: CASE EVENT DATE: 20140911
